FAERS Safety Report 25467727 (Version 1)
Quarter: 2025Q2

REPORT INFORMATION
  Report Type: Spontaneous
  Country: IN (occurrence: IN)
  Receive Date: 20250623
  Receipt Date: 20250623
  Transmission Date: 20250716
  Serious: Yes (Other)
  Sender: MYLAN
  Company Number: IN-MYLANLABS-2025M1052112

PATIENT
  Age: 26 Year
  Sex: Male

DRUGS (3)
  1. VORICONAZOLE [Suspect]
     Active Substance: VORICONAZOLE
     Indication: Chromoblastomycosis
     Dosage: 200 MILLIGRAM, QD
  2. ITRACONAZOLE [Suspect]
     Active Substance: ITRACONAZOLE
     Indication: Chromoblastomycosis
     Dosage: 200 MILLIGRAM, QD
  3. TERBINAFINE [Suspect]
     Active Substance: TERBINAFINE
     Indication: Chromoblastomycosis
     Dosage: 500 MILLIGRAM, QD

REACTIONS (1)
  - Therapy non-responder [Unknown]
